FAERS Safety Report 10457632 (Version 2)
Quarter: 2014Q4

REPORT INFORMATION
  Report Type: Spontaneous
  Country: CH (occurrence: CH)
  Receive Date: 20140916
  Receipt Date: 20141027
  Transmission Date: 20150528
  Serious: Yes (Hospitalization, Other)
  Sender: FDA-Public Use
  Company Number: CH-ASTRAZENECA-2014SE67262

PATIENT
  Age: 792 Month
  Sex: Male
  Weight: 70.6 kg

DRUGS (6)
  1. NEXIUM [Suspect]
     Active Substance: ESOMEPRAZOLE MAGNESIUM
     Route: 048
     Dates: end: 20140716
  2. PHENHYDAN [Interacting]
     Active Substance: PHENYTOIN
     Indication: ALCOHOLIC SEIZURE
     Route: 048
     Dates: start: 20140724
  3. PHENHYDAN [Interacting]
     Active Substance: PHENYTOIN
     Indication: ALCOHOLIC SEIZURE
     Route: 048
     Dates: start: 1984
  4. TEMESTA [Interacting]
     Active Substance: LORAZEPAM
     Indication: DRUG DEPENDENCE
     Route: 048
     Dates: start: 1984
  5. PHENHYDAN [Interacting]
     Active Substance: PHENYTOIN
     Indication: ALCOHOLIC SEIZURE
     Route: 048
     Dates: end: 20140804
  6. PHENHYDAN [Interacting]
     Active Substance: PHENYTOIN
     Indication: ALCOHOLIC SEIZURE
     Route: 048
     Dates: start: 20140721, end: 20140723

REACTIONS (5)
  - Fall [Recovered/Resolved]
  - Dizziness [Unknown]
  - Gait disturbance [Recovered/Resolved]
  - Drug interaction [Unknown]
  - Anticonvulsant drug level above therapeutic [Recovered/Resolved]

NARRATIVE: CASE EVENT DATE: 201407
